FAERS Safety Report 4659434-2 (Version None)
Quarter: 2005Q2

REPORT INFORMATION
  Report Type: 
  Country: None (occurrence: None)
  Receive Date: 20050412
  Receipt Date: 20050215
  Transmission Date: 20051028
  Serious: No
  Sender: FDA-Public Use
  Company Number: 2005S1000023

PATIENT
  Age: 41 Year
  Sex: Male
  Weight: 159 kg

DRUGS (12)
  1. CUBICIN [Suspect]
     Indication: ARTHRITIS INFECTIVE
     Dosage: 750 MG; Q24H; IV
     Route: 042
     Dates: start: 20050212, end: 20050214
  2. CUBICIN [Suspect]
     Indication: BETA HAEMOLYTIC STREPTOCOCCAL INFECTION
     Dosage: 750 MG; Q24H; IV
     Route: 042
     Dates: start: 20050212, end: 20050214
  3. NORVASC [Concomitant]
  4. HYDROCHLOROTHIAZIDE [Concomitant]
  5. DIOVAN [Concomitant]
  6. LOVENOX [Concomitant]
  7. ZANTAC [Concomitant]
  8. LACTINEX [Concomitant]
  9. ALLERGY MEDICATION [Concomitant]
  10. PAIN MEDICATION [Concomitant]
  11. VANCOMYCIN [Concomitant]
  12. LEVAQUIN [Concomitant]

REACTIONS (1)
  - BLOOD CREATININE INCREASED [None]
